FAERS Safety Report 8050234-2 (Version None)
Quarter: 2012Q1

REPORT INFORMATION
  Report Type: 
  Country: None (occurrence: None)
  Receive Date: 20120117
  Receipt Date: 20120111
  Transmission Date: 20120608
  Serious: Yes (Other)
  Sender: FDA-Public Use
  Company Number: TW-PFIZER INC-2012004021

PATIENT
  Sex: Female

DRUGS (1)
  1. PREMARIN [Suspect]
     Dosage: UNK, HS
     Route: 061
     Dates: start: 20111230, end: 20120106

REACTIONS (2)
  - TACHYCARDIA [None]
  - BREAST PAIN [None]
